FAERS Safety Report 24389408 (Version 1)
Quarter: 2024Q4

REPORT INFORMATION
  Report Type: Spontaneous
  Country: ES (occurrence: ES)
  Receive Date: 20241003
  Receipt Date: 20241003
  Transmission Date: 20250115
  Serious: Yes (Other)
  Sender: STRIDES
  Company Number: ES-STRIDES ARCOLAB LIMITED-2024SP012614

PATIENT
  Age: 12 Year
  Sex: Male

DRUGS (1)
  1. AMOXICILLIN [Suspect]
     Active Substance: AMOXICILLIN
     Indication: Antibiotic therapy
     Dosage: UNK
     Route: 048

REACTIONS (4)
  - Respiratory distress [Unknown]
  - Angioedema [Unknown]
  - Urticaria [Unknown]
  - Anaphylactic reaction [Unknown]
